FAERS Safety Report 8395567-5 (Version None)
Quarter: 2012Q2

REPORT INFORMATION
  Report Type: 
  Country: None (occurrence: None)
  Receive Date: 20120530
  Receipt Date: 20110901
  Transmission Date: 20120825
  Serious: No
  Sender: FDA-Public Use
  Company Number: US-GLAXOSMITHKLINE-A0943196A

PATIENT
  Age: 10 Year
  Sex: Female

DRUGS (3)
  1. XOPENEX [Concomitant]
  2. VENTOLIN [Suspect]
     Indication: ASTHMA
     Dosage: 2PUFF AS REQUIRED
     Route: 055
     Dates: start: 20110201
  3. FLOVENT [Concomitant]

REACTIONS (1)
  - PALPITATIONS [None]
